FAERS Safety Report 9046919 (Version 3)
Quarter: 2013Q3

REPORT INFORMATION
  Report Type: Report from Study
  Country: CA (occurrence: CA)
  Receive Date: 20130204
  Receipt Date: 20130828
  Transmission Date: 20140515
  Serious: Yes (Other)
  Sender: FDA-Public Use
  Company Number: CA-JNJFOC-20130113164

PATIENT
  Age: 16 Year
  Sex: Female
  Weight: 37 kg

DRUGS (14)
  1. REMICADE [Suspect]
     Indication: CROHN^S DISEASE
     Dosage: EMERGENCY DOSE
     Route: 042
     Dates: start: 20130213
  2. REMICADE [Suspect]
     Indication: CROHN^S DISEASE
     Route: 042
     Dates: start: 20110221
  3. REMICADE [Suspect]
     Indication: CROHN^S DISEASE
     Route: 042
     Dates: start: 201301
  4. REMICADE [Suspect]
     Indication: CROHN^S DISEASE
     Route: 042
     Dates: start: 2013
  5. REMICADE [Suspect]
     Indication: CROHN^S DISEASE
     Dosage: STARTED 3 YEARS AGO FROM THE TIME OF THE REPORT
     Route: 042
     Dates: start: 2010
  6. PREDNISONE [Concomitant]
     Dosage: FOR 21 DAYS THEN TAPER OFF 5 MG EACH DAY UNTIL FINISHED
     Route: 065
  7. VITAMIN D [Concomitant]
     Route: 065
  8. RESTORALAX [Concomitant]
     Route: 065
  9. PROTEIN SHAKES [Concomitant]
     Indication: WEIGHT INCREASED
     Route: 065
  10. IRON INFUSION [Concomitant]
     Dosage: FOR 3 WEEKS
     Route: 065
  11. IMURAN [Concomitant]
     Indication: CROHN^S DISEASE
     Route: 065
     Dates: start: 20101210
  12. HYDROCORTISONE [Concomitant]
     Indication: PREMEDICATION
     Route: 042
  13. TYLENOL [Concomitant]
     Indication: PREMEDICATION
     Route: 048
  14. BENADRYL [Concomitant]
     Indication: PREMEDICATION
     Route: 042

REACTIONS (9)
  - Infusion related reaction [Recovering/Resolving]
  - Enteritis [Unknown]
  - Irritable bowel syndrome [Recovered/Resolved]
  - Fistula [Unknown]
  - Joint stiffness [Unknown]
  - Musculoskeletal stiffness [Unknown]
  - Ileal stenosis [Unknown]
  - Drug hypersensitivity [Recovering/Resolving]
  - Dyspnoea [Recovered/Resolved]
